FAERS Safety Report 15056423 (Version 1)
Quarter: 2018Q2

REPORT INFORMATION
  Report Type: Report from Study
  Country: DE (occurrence: DE)
  Receive Date: 20180622
  Receipt Date: 20180622
  Transmission Date: 20180711
  Serious: No
  Sender: FDA-Public Use
  Company Number: DE-BIOVERATIV-2018BV000391

PATIENT
  Age: 47 Year
  Sex: Male

DRUGS (2)
  1. ELOCTA [Suspect]
     Active Substance: EFMOROCTOCOG ALFA
     Indication: FACTOR VIII DEFICIENCY
     Dosage: IN CASE OF BLEEDS
     Route: 042
  2. ELOCTA [Suspect]
     Active Substance: EFMOROCTOCOG ALFA
     Indication: PROPHYLAXIS
     Dosage: 2000 IU ON MONDAYS AND 4000 UNITS ON FRIDAYS, PROPHYLAXIS - PRIOR TO BEGINNING ONCE WEEKLY TREATMENT
     Route: 065

REACTIONS (3)
  - Joint injury [Unknown]
  - Chest injury [Unknown]
  - Back injury [Unknown]
